FAERS Safety Report 6450892-X (Version None)
Quarter: 2009Q4

REPORT INFORMATION
  Report Type: 
  Country: None (occurrence: None)
  Receive Date: 20091123
  Receipt Date: 20091111
  Transmission Date: 20100525
  Serious: Yes (Hospitalization)
  Sender: FDA-Public Use
  Company Number: GB-PFIZER INC-2007040205

PATIENT
  Age: 9 Year
  Sex: Female
  Weight: 27 kg

DRUGS (1)
  1. OMNITROPE [Suspect]
     Indication: TURNER'S SYNDROME
     Dosage: 1.8 MG, UNK
     Dates: start: 20031011, end: 20070424

REACTIONS (1)
  - THROMBOCYTOPENIC PURPURA [None]
